FAERS Safety Report 4852427-1 (Version None)
Quarter: 2005Q4

REPORT INFORMATION
  Report Type: 
  Country: None (occurrence: None)
  Receive Date: 20051130
  Receipt Date: 20050802
  Transmission Date: 20060501
  Serious: No
  Sender: FDA-Public Use
  Company Number: WAES 0507USA02279

PATIENT
  Age: 67 Year
  Sex: Male
  Weight: 69.4003 kg

DRUGS (4)
  1. ZETIA [Suspect]
     Indication: HYPERLIPIDAEMIA
     Dosage: 10 MG/Q3D/PO  : 10 MG/DAILY/PO  : 10 MG/QOD
     Route: 048
     Dates: end: 20050704
  2. ZETIA [Suspect]
     Indication: HYPERLIPIDAEMIA
     Dosage: 10 MG/Q3D/PO  : 10 MG/DAILY/PO  : 10 MG/QOD
     Route: 048
     Dates: start: 20050620
  3. CARDIZEM CD [Concomitant]
  4. GLUCOSAMINE [Concomitant]

REACTIONS (2)
  - INAPPROPRIATE SCHEDULE OF DRUG ADMINISTRATION [None]
  - URINARY RETENTION [None]
